FAERS Safety Report 7558854-6 (Version None)
Quarter: 2011Q2

REPORT INFORMATION
  Report Type: 
  Country: None (occurrence: None)
  Receive Date: 20110613
  Receipt Date: 20110525
  Transmission Date: 20111010
  Serious: No
  Sender: FDA-Public Use
  Company Number: PI-05742

PATIENT
  Age: 45 Year
  Sex: Female

DRUGS (1)
  1. CHLORAPREP [Suspect]
     Indication: INFECTION PROPHYLAXIS
     Dosage: 1.5ML, TOPICAL
     Route: 061
     Dates: start: 20100311

REACTIONS (7)
  - APPLICATION SITE NECROSIS [None]
  - SOFT TISSUE NECROSIS [None]
  - APPLICATION SITE CELLULITIS [None]
  - APPLICATION SITE HAEMATOMA [None]
  - CHEMICAL INJURY [None]
  - APPLICATION SITE REACTION [None]
  - DRUG HYPERSENSITIVITY [None]
